FAERS Safety Report 10955941 (Version 1)
Quarter: 2015Q1

REPORT INFORMATION
  Report Type: Spontaneous
  Country: US (occurrence: None)
  Receive Date: 20150325
  Receipt Date: 20150325
  Transmission Date: 20150721
  Serious: Yes (Other)
  Sender: FDA-Public Use
  Company Number: None

PATIENT
  Age: 9 Year
  Sex: Female
  Weight: 21.8 kg

DRUGS (2)
  1. GENOTROPIN [Suspect]
     Active Substance: SOMATROPIN
     Indication: BODY HEIGHT BELOW NORMAL
     Dosage: 1.1 MG, 6 DAYS PER WEEK, SUBCUTANEOUSLY?
     Route: 058
     Dates: start: 20130909
  2. GENOTROPIN [Suspect]
     Active Substance: SOMATROPIN
     Dosage: 1.1 MG, 6 DAYS PER WEEK, SUBCUTANEOUSLY?
     Route: 058
     Dates: start: 20130909

REACTIONS (2)
  - Cough [None]
  - Snoring [None]

NARRATIVE: CASE EVENT DATE: 20150303
